FAERS Safety Report 15472114 (Version 1)
Quarter: 2018Q4

REPORT INFORMATION
  Report Type: Spontaneous
  Country: US (occurrence: US)
  Receive Date: 20181008
  Receipt Date: 20181008
  Transmission Date: 20190205
  Serious: No
  Sender: FDA-Public Use
  Company Number: US-AMGEN-USASP2018137406

PATIENT
  Age: 33 Year
  Sex: Female

DRUGS (1)
  1. CORLANOR [Suspect]
     Active Substance: IVABRADINE HYDROCHLORIDE
     Indication: SINUS TACHYCARDIA
     Dosage: 5 MG, BID (AM AND PM)
     Route: 065
     Dates: start: 2018

REACTIONS (4)
  - Onycholysis [Unknown]
  - Off label use [Unknown]
  - Photopsia [Unknown]
  - Visual impairment [Unknown]

NARRATIVE: CASE EVENT DATE: 2018
